FAERS Safety Report 12669148 (Version 2)
Quarter: 2016Q3

REPORT INFORMATION
  Report Type: Report from Study
  Country: CA (occurrence: CA)
  Receive Date: 20160819
  Receipt Date: 20160824
  Transmission Date: 20161109
  Serious: Yes (Hospitalization)
  Sender: FDA-Public Use
  Company Number: CA-JNJFOC-20160812546

PATIENT
  Age: 34 Year
  Sex: Female
  Weight: 63.12 kg

DRUGS (15)
  1. REMICADE [Suspect]
     Active Substance: INFLIXIMAB
     Indication: CROHN^S DISEASE
     Route: 042
     Dates: start: 2004
  2. QUETIAPINE. [Concomitant]
     Active Substance: QUETIAPINE
     Route: 065
  3. VITAMIN B12 [Concomitant]
     Active Substance: CYANOCOBALAMIN
     Dosage: 1 MONTH
     Route: 030
  4. HYDROMORPH CONTIN [Concomitant]
     Active Substance: HYDROMORPHONE
     Route: 065
  5. PREGABALIN. [Concomitant]
     Active Substance: PREGABALIN
     Route: 065
  6. RIZATRIPTAN. [Concomitant]
     Active Substance: RIZATRIPTAN
     Route: 065
  7. PURINETHOL [Concomitant]
     Active Substance: MERCAPTOPURINE
     Dosage: 100 BEDTIME
     Route: 065
  8. DEPO-PROVERA [Concomitant]
     Active Substance: MEDROXYPROGESTERONE ACETATE
     Route: 065
  9. FOLIC ACID. [Concomitant]
     Active Substance: FOLIC ACID
     Route: 065
  10. QUETIAPINE. [Concomitant]
     Active Substance: QUETIAPINE
     Route: 065
  11. REMICADE [Suspect]
     Active Substance: INFLIXIMAB
     Indication: CROHN^S DISEASE
     Route: 042
     Dates: start: 20160815
  12. FLURAZEPAM [Concomitant]
     Active Substance: FLURAZEPAM\FLURAZEPAM HYDROCHLORIDE
     Route: 065
  13. MEZAVANT [Concomitant]
     Active Substance: MESALAMINE
     Route: 065
  14. METOCLOPRAMIDE. [Concomitant]
     Active Substance: METOCLOPRAMIDE
     Route: 065
  15. CYMBALTA [Concomitant]
     Active Substance: DULOXETINE HYDROCHLORIDE
     Route: 065

REACTIONS (5)
  - Catheter site infection [Recovered/Resolved]
  - Abdominal pain [Unknown]
  - Off label use [Unknown]
  - Clostridial sepsis [Recovered/Resolved]
  - Product use issue [Unknown]

NARRATIVE: CASE EVENT DATE: 2004
